FAERS Safety Report 16633267 (Version 1)
Quarter: 2019Q3

REPORT INFORMATION
  Report Type: Spontaneous
  Country: US (occurrence: US)
  Receive Date: 20190725
  Receipt Date: 20190725
  Transmission Date: 20191004
  Serious: No
  Sender: FDA-Public Use
  Company Number: US-TARO-2018TAR00693

PATIENT
  Sex: Female
  Weight: 54.88 kg

DRUGS (4)
  1. DESONIDE CREAM USP 0.05% [Suspect]
     Active Substance: DESONIDE
     Indication: ACNE
     Dosage: UNK, UP TO 3X/DAY ^TWICE OR THREE THE FIRST DAY^
     Route: 061
     Dates: start: 20180912, end: 20180912
  2. PRAVASTATIN. [Concomitant]
     Active Substance: PRAVASTATIN
  3. DESONIDE CREAM USP 0.05% [Suspect]
     Active Substance: DESONIDE
     Dosage: UNK, 2X/DAY
     Route: 061
     Dates: start: 20180913, end: 20180914
  4. OMEPRAZOLE. [Concomitant]
     Active Substance: OMEPRAZOLE

REACTIONS (6)
  - Swelling [Recovering/Resolving]
  - Rash [Recovering/Resolving]
  - Off label use [Recovered/Resolved]
  - Blister [Recovering/Resolving]
  - Product quality issue [Recovered/Resolved]
  - Hypersensitivity [Recovering/Resolving]

NARRATIVE: CASE EVENT DATE: 201809
